FAERS Safety Report 9449731 (Version 1)
Quarter: 2013Q3

REPORT INFORMATION
  Report Type: Spontaneous
  Country: BR (occurrence: BR)
  Receive Date: 20130809
  Receipt Date: 20130809
  Transmission Date: 20140515
  Serious: Yes (Hospitalization)
  Sender: FDA-Public Use
  Company Number: BR-SANOFI-AVENTIS-2013SA078274

PATIENT
  Age: 56 Year
  Sex: Male
  Weight: 100 kg

DRUGS (5)
  1. LANTUS [Suspect]
     Indication: TYPE 2 DIABETES MELLITUS
     Route: 058
     Dates: start: 201211
  2. INSULIN PEN NOS [Suspect]
     Indication: DEVICE THERAPY
     Dates: start: 2013, end: 201307
  3. PAROXETINE [Concomitant]
     Indication: ANTIDEPRESSANT THERAPY
     Dosage: STRENGTH: 10 MG?IN THE MORNING
     Route: 048
  4. DIAZEPAM [Concomitant]
     Indication: SLEEP DISORDER
     Dosage: STRENGTH: 10 MG
     Route: 048
  5. NEOZINE [Concomitant]
     Indication: MENTAL DISORDER
     Dosage: STRENGTH: 25 MG?AT NIGHT
     Route: 048

REACTIONS (6)
  - Kidney infection [Recovered/Resolved]
  - Pain [Recovered/Resolved]
  - Hallucination [Recovered/Resolved]
  - Renal disorder [Unknown]
  - Injection site reaction [Unknown]
  - Injection site pain [Unknown]
